FAERS Safety Report 5245947-1 (Version None)
Quarter: 2007Q1

REPORT INFORMATION
  Report Type: 
  Country: None (occurrence: None)
  Receive Date: 20070221
  Receipt Date: 20070208
  Transmission Date: 20070707
  Serious: Yes (Hospitalization)
  Sender: FDA-Public Use
  Company Number: WAES 0702AUT00004

PATIENT
  Age: 56 Year
  Sex: Male

DRUGS (6)
  1. ZETIA [Suspect]
     Indication: HYPERCHOLESTEROLAEMIA
     Dosage: 10 MG DAILY PO
     Route: 048
     Dates: start: 20060924, end: 20061106
  2. ZETIA [Suspect]
     Indication: MIXED HYPERLIPIDAEMIA
     Dosage: 10 MG DAILY PO
     Route: 048
     Dates: start: 20060924, end: 20061106
  3. FLUVASTATIN [Suspect]
     Indication: HYPERCHOLESTEROLAEMIA
     Dosage: 80 MG DAILY PO
     Route: 048
  4. FLUVASTATIN [Suspect]
     Indication: MIXED HYPERLIPIDAEMIA
     Dosage: 80 MG DAILY PO
     Route: 048
  5. INSULIN [Concomitant]
  6. INSULIN, BIPHASIC ISOPHANE (INJECTION) [Concomitant]

REACTIONS (4)
  - BLOOD TRIGLYCERIDES INCREASED [None]
  - HEPATIC ENZYME INCREASED [None]
  - NAUSEA [None]
  - VOMITING [None]
